FAERS Safety Report 22303612 (Version 1)
Quarter: 2023Q2

REPORT INFORMATION
  Report Type: Spontaneous
  Country: US (occurrence: None)
  Receive Date: 20230509
  Receipt Date: 20230509
  Transmission Date: 20230722
  Serious: Yes (Other)
  Sender: FDA-Public Use
  Company Number: None

PATIENT
  Age: 47 Year
  Sex: Male

DRUGS (1)
  1. DIMETHYL FUMARATE [Suspect]
     Active Substance: DIMETHYL FUMARATE
     Dosage: FREQUENCY : TWICE A DAY;?
     Route: 048

REACTIONS (7)
  - Abdominal pain upper [None]
  - Hot flush [None]
  - Herpes zoster [None]
  - Nasopharyngitis [None]
  - Oxygen saturation decreased [None]
  - Dyspnoea [None]
  - Body temperature increased [None]

NARRATIVE: CASE EVENT DATE: 20220421
